FAERS Safety Report 22330588 (Version 2)
Quarter: 2023Q2

REPORT INFORMATION
  Report Type: Spontaneous
  Country: CA (occurrence: CA)
  Receive Date: 20230517
  Receipt Date: 20230526
  Transmission Date: 20230722
  Serious: Yes (Other)
  Sender: FDA-Public Use
  Company Number: ALC2023CA002402

PATIENT
  Age: 74 Year
  Sex: Female

DRUGS (2)
  1. LUTEIN\MINERALS\VITAMINS\ZEAXANTHIN [Suspect]
     Active Substance: LUTEIN\MINERALS\VITAMINS\ZEAXANTHIN
     Indication: Macular degeneration
     Dosage: UNK
     Route: 048
     Dates: start: 202105
  2. LIPITOR [Concomitant]
     Active Substance: ATORVASTATIN CALCIUM
     Indication: Myocardial infarction
     Dosage: 1 DF, Q2W
     Route: 065

REACTIONS (1)
  - Breast cancer [Not Recovered/Not Resolved]
